FAERS Safety Report 4732944-5 (Version None)
Quarter: 2005Q3

REPORT INFORMATION
  Report Type: 
  Country: None (occurrence: None)
  Receive Date: 20050803
  Receipt Date: 20050621
  Transmission Date: 20060218
  Serious: No
  Sender: FDA-Public Use
  Company Number: US-GLAXOSMITHKLINE-A0563614A

PATIENT
  Sex: Female

DRUGS (8)
  1. AVANDAMET [Suspect]
     Dosage: 1TAB PER DAY
     Route: 048
     Dates: start: 20050101, end: 20050101
  2. HUMALOG [Concomitant]
  3. LISINOPRIL [Concomitant]
  4. ZYRTEC [Concomitant]
  5. LASIX [Concomitant]
  6. NEXIUM [Concomitant]
  7. K-TAB [Concomitant]
  8. ASPIRIN [Concomitant]

REACTIONS (1)
  - FLUID RETENTION [None]
